FAERS Safety Report 8400765-8 (Version None)
Quarter: 2012Q2

REPORT INFORMATION
  Report Type: 
  Country: None (occurrence: None)
  Receive Date: 20120531
  Receipt Date: 20120524
  Transmission Date: 20120825
  Serious: Yes (Hospitalization, Disabling, Other)
  Sender: FDA-Public Use
  Company Number: US-MERCK-1203USA03307

PATIENT
  Age: 50 Year
  Sex: Female
  Weight: 45 kg

DRUGS (10)
  1. GLUCOSAMINE [Concomitant]
     Indication: OSTEOARTHRITIS
     Route: 065
  2. NAPROXEN (ALEVE) [Concomitant]
     Indication: OSTEOARTHRITIS
     Route: 065
     Dates: start: 20080601
  3. CALCIUM (UNSPECIFIED) [Concomitant]
     Indication: OSTEOPENIA
     Route: 065
  4. VITAMIN D (UNSPECIFIED) [Concomitant]
     Indication: OSTEOPENIA
     Route: 065
  5. BONIVA [Suspect]
     Indication: MENOPAUSE
     Route: 065
     Dates: start: 20060101, end: 20110101
  6. BONIVA [Suspect]
     Indication: OSTEOPENIA
     Route: 065
     Dates: start: 20060101, end: 20110101
  7. CHONDROITIN SULFATE SODIUM AND GLUCOSAMINE SULFATE [Concomitant]
     Indication: OSTEOARTHRITIS
     Route: 065
  8. CELEBREX [Concomitant]
     Indication: OSTEOARTHRITIS
     Route: 065
  9. FOSAMAX [Suspect]
     Indication: MENOPAUSE
     Route: 048
     Dates: start: 20040801
  10. FOSAMAX [Suspect]
     Indication: OSTEOPENIA
     Route: 048
     Dates: start: 20040801

REACTIONS (58)
  - UPPER GASTROINTESTINAL HAEMORRHAGE [None]
  - HAEMORRHOIDS [None]
  - WEIGHT INCREASED [None]
  - TEMPOROMANDIBULAR JOINT SYNDROME [None]
  - LIVER FUNCTION TEST ABNORMAL [None]
  - HYPERTENSION [None]
  - FEMUR FRACTURE [None]
  - HAEMORRHAGE [None]
  - EXOSTOSIS [None]
  - PAIN IN EXTREMITY [None]
  - BACK PAIN [None]
  - MULTIPLE FRACTURES [None]
  - HAEMATOCHEZIA [None]
  - GASTROOESOPHAGEAL REFLUX DISEASE [None]
  - BURSITIS [None]
  - TOOTH DISORDER [None]
  - THROAT IRRITATION [None]
  - SPONDYLITIS [None]
  - INTERVERTEBRAL DISC DEGENERATION [None]
  - OSTEOPOROSIS [None]
  - DYSPEPSIA [None]
  - GASTRITIS [None]
  - POLYCHONDRITIS [None]
  - MEDICATION ERROR [None]
  - VIITH NERVE PARALYSIS [None]
  - CONSTIPATION [None]
  - DEPRESSION [None]
  - DRUG DISPENSING ERROR [None]
  - ARTHRALGIA [None]
  - PAIN [None]
  - MUSCULOSKELETAL DISORDER [None]
  - PRURITUS [None]
  - PANCREATIC CYST [None]
  - NEPHROLITHIASIS [None]
  - ANXIETY [None]
  - GROIN PAIN [None]
  - GAIT DISTURBANCE [None]
  - OFF LABEL USE [None]
  - NAUSEA [None]
  - SCOLIOSIS [None]
  - ROTATOR CUFF SYNDROME [None]
  - INFECTION [None]
  - ADVERSE EVENT [None]
  - MELAENA [None]
  - FOOT DEFORMITY [None]
  - SOMNOLENCE [None]
  - DIARRHOEA [None]
  - VIRAL INFECTION [None]
  - HEPATITIS [None]
  - LOW TURNOVER OSTEOPATHY [None]
  - ANAEMIA [None]
  - CELLULITIS [None]
  - CRYSTAL ARTHROPATHY [None]
  - TENDONITIS [None]
  - TENDON INJURY [None]
  - MUSCLE SPASMS [None]
  - HYPERCHOLESTEROLAEMIA [None]
  - BONE DISORDER [None]
